FAERS Safety Report 4472026-3 (Version None)
Quarter: 2004Q3

REPORT INFORMATION
  Report Type: 
  Country: None (occurrence: None)
  Receive Date: 20040909
  Receipt Date: 20040604
  Transmission Date: 20050211
  Serious: Yes (Hospitalization)
  Sender: FDA-Public Use
  Company Number: F03200400054

PATIENT
  Age: 55 Year
  Sex: Male
  Weight: 72.9 kg

DRUGS (9)
  1. OXALIPLATIN-SOLUTION- [Suspect]
     Indication: COLORECTAL CANCER METASTATIC
     Dates: start: 20040128, end: 20040128
  2. PTK787/ZK 222584 VS. PLACEBO [Suspect]
     Indication: COLORECTAL CANCER METASTATIC
     Dates: start: 20030922, end: 20040127
  3. FLUOROURACIL [Suspect]
     Indication: COLORECTAL CANCER METASTATIC
     Dosage: 780 MG BOLUS FOLLOWED BY 1170 MG IV-INTRAVENOUS NOS
     Route: 042
     Dates: start: 20040128, end: 20040128
  4. LEUCOVORIN CALCIUM [Suspect]
     Indication: COLORECTAL CANCER METASTATIC
     Dates: start: 20030917, end: 20040127
  5. GUAIFENESIN [Concomitant]
  6. NAPROXEN SODIUM [Concomitant]
  7. VITAMIN B6 [Concomitant]
  8. POLYSACCHARIDE-IRON COMPLEX [Concomitant]
  9. LEVOTHYROXINE SODIUM [Concomitant]

REACTIONS (1)
  - FEBRILE NEUTROPENIA [None]
